FAERS Safety Report 4490236-6 (Version None)
Quarter: 2004Q4

REPORT INFORMATION
  Report Type: 
  Country: None (occurrence: None)
  Receive Date: 20041027
  Receipt Date: 20041020
  Transmission Date: 20050328
  Serious: Yes (Death, Hospitalization)
  Sender: FDA-Public Use
  Company Number: 2004-09-0128

PATIENT
  Age: 71 Year
  Sex: Male
  Weight: 84 kg

DRUGS (5)
  1. TEMODAL [Suspect]
     Indication: BRAIN NEOPLASM
     Dosage: 150 MG/M^2 QD ORAL
     Route: 048
     Dates: start: 20040510, end: 20040514
  2. VEPESID [Suspect]
     Indication: BRAIN NEOPLASM
     Dates: start: 20040801
  3. CELECTOL [Concomitant]
  4. PRACTAZIN [Concomitant]
  5. CORTANCYL [Concomitant]

REACTIONS (12)
  - ABNORMAL BEHAVIOUR [None]
  - ACTIVITIES OF DAILY LIVING IMPAIRED [None]
  - AGGRESSION [None]
  - APHASIA [None]
  - BALANCE DISORDER [None]
  - BRAIN NEOPLASM [None]
  - CIRCADIAN RHYTHM SLEEP DISORDER [None]
  - CONFUSIONAL STATE [None]
  - EATING DISORDER [None]
  - INTRACRANIAL PRESSURE INCREASED [None]
  - NEOPLASM PROGRESSION [None]
  - URINARY INCONTINENCE [None]
